FAERS Safety Report 9443372 (Version 1)
Quarter: 2013Q3

REPORT INFORMATION
  Report Type: Spontaneous
  Country: US (occurrence: US)
  Receive Date: 20130806
  Receipt Date: 20130806
  Transmission Date: 20140515
  Serious: Yes (Hospitalization, Other)
  Sender: FDA-Public Use
  Company Number: US-AMGEN-USASP2013053421

PATIENT
  Age: 63 Year
  Sex: Female

DRUGS (1)
  1. ENBREL [Suspect]
     Indication: PSORIASIS
     Dosage: 50 MG, QWK
     Route: 065

REACTIONS (4)
  - Local swelling [Recovered/Resolved]
  - Loss of consciousness [Recovered/Resolved]
  - Arthropod bite [Recovered/Resolved]
  - Ammonia increased [Recovered/Resolved]
